FAERS Safety Report 16884391 (Version 1)
Quarter: 2019Q4

REPORT INFORMATION
  Report Type: Spontaneous
  Country: US (occurrence: US)
  Receive Date: 20191004
  Receipt Date: 20191004
  Transmission Date: 20200122
  Serious: Yes (Other)
  Sender: FDA-Public Use
  Company Number: US-SA-2019SA261409

PATIENT
  Age: 58 Year

DRUGS (1)
  1. ICY HOT [Suspect]
     Active Substance: MENTHOL\METHYL SALICYLATE

REACTIONS (4)
  - Pain [Unknown]
  - Burns second degree [Unknown]
  - Infection [Unknown]
  - Sleep deficit [Unknown]

NARRATIVE: CASE EVENT DATE: 20190904
